FAERS Safety Report 13418486 (Version 9)
Quarter: 2018Q4

REPORT INFORMATION
  Report Type: Report from Study
  Country: US (occurrence: US)
  Receive Date: 20170406
  Receipt Date: 20181008
  Transmission Date: 20190204
  Serious: Yes (Hospitalization)
  Sender: FDA-Public Use
  Company Number: US-ACTELION-A-US2017-151713

PATIENT
  Age: 32 Year
  Sex: Male
  Weight: 86.17 kg

DRUGS (12)
  1. GABAPENTIN. [Concomitant]
     Active Substance: GABAPENTIN
     Indication: NEUROPATHY PERIPHERAL
     Dosage: 100 MG, BID
  2. VELETRI [Suspect]
     Active Substance: EPOPROSTENOL
     Indication: PULMONARY HYPERTENSION
     Dosage: 40 NG/KG, PER MIN
     Route: 042
  3. LETAIRIS [Suspect]
     Active Substance: AMBRISENTAN
     Indication: PULMONARY HYPERTENSION
     Dosage: 5 MG, QD
     Route: 065
     Dates: start: 20170308, end: 20170329
  4. VELETRI [Suspect]
     Active Substance: EPOPROSTENOL
     Dosage: 38 NG/KG, PER MIN
     Route: 042
  5. VELETRI [Suspect]
     Active Substance: EPOPROSTENOL
     Dosage: 35 NG/KG, PER MIN
     Route: 042
  6. ULTRAM [Concomitant]
     Active Substance: TRAMADOL HYDROCHLORIDE
     Dosage: 50 MG, PRN
  7. ADCIRCA [Suspect]
     Active Substance: TADALAFIL
     Indication: PULMONARY HYPERTENSION
     Dosage: 20 MG, UNK
     Route: 048
     Dates: start: 20170307
  8. PRILOSEC [Concomitant]
     Active Substance: OMEPRAZOLE MAGNESIUM
     Dosage: 20 MG, QD
  9. TYLENOL [Concomitant]
     Active Substance: ACETAMINOPHEN
  10. VELETRI [Suspect]
     Active Substance: EPOPROSTENOL
     Dosage: 8 NG/KG, PER MIN
     Route: 042
     Dates: start: 20170307
  11. VELETRI [Suspect]
     Active Substance: EPOPROSTENOL
     Dosage: 17 NG/KG, PER MIN
     Route: 042
  12. VELETRI [Suspect]
     Active Substance: EPOPROSTENOL
     Dosage: 16 NG/KG, PER MIN
     Route: 042

REACTIONS (19)
  - Cardiac arrest [Unknown]
  - Neuropathy peripheral [Unknown]
  - Fatigue [Unknown]
  - Musculoskeletal chest pain [Unknown]
  - Hypertension [Unknown]
  - Headache [Unknown]
  - Pain [Unknown]
  - Cardiac pacemaker insertion [Unknown]
  - Pulmonary embolism [Unknown]
  - Blood pressure increased [Unknown]
  - Tachypnoea [Unknown]
  - Diarrhoea [Unknown]
  - Pyrexia [Unknown]
  - Atrioventricular block complete [Unknown]
  - Pain in extremity [Unknown]
  - Epistaxis [Unknown]
  - Dyspnoea [Unknown]
  - Pain in jaw [Unknown]
  - Cough [Unknown]

NARRATIVE: CASE EVENT DATE: 20170314
